FAERS Safety Report 9404735 (Version 2)
Quarter: 2013Q3

REPORT INFORMATION
  Report Type: Report from Study
  Country: NZ (occurrence: NZ)
  Receive Date: 20130717
  Receipt Date: 20130805
  Transmission Date: 20140515
  Serious: Yes (Death, Hospitalization, Other)
  Sender: FDA-Public Use
  Company Number: PHHY2013NZ053889

PATIENT
  Age: 64 Year
  Sex: Male

DRUGS (10)
  1. CLOZARIL [Suspect]
     Indication: PSYCHOTIC DISORDER
     Dosage: 50 MG
     Route: 048
     Dates: start: 20121029, end: 20130202
  2. OLANZAPINE [Suspect]
     Dosage: 5 MG, DAILY
     Route: 048
     Dates: start: 20130205
  3. SINEMET [Concomitant]
     Indication: PARKINSON^S DISEASE
     Dosage: 100/25 MG, 5 DAY
     Route: 048
  4. REFRANE [Concomitant]
     Dosage: UNK UKN, UNK
     Route: 048
  5. CALIPRENE [Concomitant]
     Route: 048
  6. PARACETAMOL [Concomitant]
     Dosage: UNK UKN, UNK
     Route: 048
  7. ASPIRIN [Concomitant]
     Dosage: 100 MG, UNK
     Route: 048
  8. CYPROTERONE [Concomitant]
     Dosage: 50 MG, UNK
     Route: 048
  9. SODIUM VALPROATE [Concomitant]
     Dosage: 2.5 G, PER DAY
     Route: 048
  10. HEXAL [Concomitant]
     Dosage: 3 DF, NOCTE
     Route: 048

REACTIONS (9)
  - Parkinson^s disease [Fatal]
  - Pancytopenia [Fatal]
  - Pneumonia [Fatal]
  - Concomitant disease progression [Unknown]
  - White blood cell count decreased [Unknown]
  - Neutrophil count decreased [Unknown]
  - Thrombocytopenia [Not Recovered/Not Resolved]
  - Asthenia [Unknown]
  - Folate deficiency [Unknown]
